FAERS Safety Report 19800528 (Version 1)
Quarter: 2021Q3

REPORT INFORMATION
  Report Type: Report from Study
  Country: GB (occurrence: GB)
  Receive Date: 20210907
  Receipt Date: 20210907
  Transmission Date: 20211014
  Serious: Yes (Other)
  Sender: FDA-Public Use
  Company Number: GB-MYLANLABS-2021M1045431

PATIENT
  Age: 48 Year
  Sex: Female

DRUGS (47)
  1. TRASTUZUMAB. [Suspect]
     Active Substance: TRASTUZUMAB
     Dosage: 350 MILLIGRAM, DOSE AMENDED DUE TO WEIGHT
     Route: 042
     Dates: start: 20160629
  2. PERTUZUMAB. [Suspect]
     Active Substance: PERTUZUMAB
     Dosage: 420 MILLIGRAM, TREATMENT INTERRUPTED DUE TO DECREASE EJECTION FRACTION
     Route: 042
     Dates: start: 20160606
  3. TRASTUZUMAB EMTANSINE [Suspect]
     Active Substance: ADO-TRASTUZUMAB EMTANSINE
     Dosage: 400 MILLIGRAM, DOSE AMMENED FOR WEIGHT
     Route: 042
     Dates: start: 20160606, end: 20160606
  4. AMETOP                             /00041401/ [Concomitant]
     Dosage: 4 PERCENT, QD
     Route: 061
     Dates: start: 20160831
  5. BISOPROLOL [Concomitant]
     Active Substance: BISOPROLOL
     Dosage: 5 MILLIGRAM, QD
     Route: 048
     Dates: start: 20181030
  6. CYCLIZINE [Concomitant]
     Active Substance: CYCLIZINE
     Indication: DYSPHAGIA
     Dosage: 50 MILLIGRAM, TID
     Route: 048
     Dates: start: 20180619
  7. DOMPERIDONE [Concomitant]
     Active Substance: DOMPERIDONE
     Dosage: 10 MILLIGRAM, TID
     Route: 048
     Dates: start: 20160512
  8. IBUPROFEN. [Concomitant]
     Active Substance: IBUPROFEN
     Dosage: UNK
     Route: 048
  9. TINZAPARIN [Concomitant]
     Active Substance: TINZAPARIN
     Indication: DEEP VEIN THROMBOSIS
     Dosage: 8000 INTERNATIONAL UNIT, QD
     Route: 058
     Dates: start: 20181018, end: 20190426
  10. NAPROXEN. [Concomitant]
     Active Substance: NAPROXEN
     Dosage: UNK
  11. CARVEDILOL. [Concomitant]
     Active Substance: CARVEDILOL
     Dosage: UNK
  12. PERTUZUMAB. [Suspect]
     Active Substance: PERTUZUMAB
     Indication: BREAST CANCER METASTATIC
     Dosage: 840 MILLIGRAM, LOADING DOSE
     Route: 042
     Dates: start: 20160516, end: 20160516
  13. TRASTUZUMAB EMTANSINE [Suspect]
     Active Substance: ADO-TRASTUZUMAB EMTANSINE
     Indication: BREAST CANCER METASTATIC
     Dosage: 450 MILLIGRAM, LOADING DOSE
     Route: 042
     Dates: start: 20160516, end: 20160516
  14. TRASTUZUMAB EMTANSINE [Suspect]
     Active Substance: ADO-TRASTUZUMAB EMTANSINE
     Dosage: 350 MILLIGRAM, INITIALLY TREATMENT INTERRUPTED DUE TO DECREASE EJECTION FRACTION
     Route: 042
     Dates: start: 20160629, end: 20180524
  15. BENZYDAMINE HYDROCHLORIDE [Concomitant]
     Active Substance: BENZYDAMINE HYDROCHLORIDE
     Dosage: 15 MILLILITER, QID
     Route: 060
     Dates: start: 20160525
  16. CALCICHEW D3 FORTE [Concomitant]
     Active Substance: CALCIUM\CHOLECALCIFEROL
     Dosage: UNK, QD
     Route: 048
     Dates: start: 20180822
  17. CETIRIZINE [Concomitant]
     Active Substance: CETIRIZINE HYDROCHLORIDE
     Dosage: UNK
     Route: 048
  18. HYOSCINE N?BUTYLBROMIDE [Concomitant]
     Active Substance: BUTYLSCOPOLAMINE
     Indication: SALIVARY HYPERSECRETION
     Dosage: 20 MILLIGRAM, QID
     Route: 048
     Dates: start: 20180619
  19. NYSTATIN. [Concomitant]
     Active Substance: NYSTATIN
     Dosage: UNK, QID (SUSPENSIONDOSE: 10000 U)
     Route: 048
     Dates: start: 20160525
  20. SALBUTAMOL [Concomitant]
     Active Substance: ALBUTEROL
     Dosage: UNK, BID
  21. FORTISIP [Concomitant]
     Active Substance: CARBOHYDRATES\FATTY ACIDS\MINERALS\PROTEIN\VITAMINS
     Indication: WEIGHT DECREASED
     Dosage: UNK
  22. COCODAMOL [Concomitant]
     Active Substance: ACETAMINOPHEN\CODEINE PHOSPHATE
     Indication: ARTHRALGIA
     Dosage: UNK, QID
     Route: 048
     Dates: start: 20190123
  23. TRASTUZUMAB. [Suspect]
     Active Substance: TRASTUZUMAB
     Dosage: 450 MILLIGRAM, LOADING DOSE
     Route: 042
     Dates: start: 20160516, end: 20160516
  24. CODEINE LINCTUS [Concomitant]
     Active Substance: CHLOROFORM\CODEINE PHOSPHATE\DRIMIA MARITIMA BULB
     Dosage: 30 MILLIGRAM, QID
     Route: 048
     Dates: start: 20191009
  25. PARACETAMOL [Concomitant]
     Active Substance: ACETAMINOPHEN
     Dosage: 1 GRAM, QID
     Route: 048
  26. TINZAPARIN [Concomitant]
     Active Substance: TINZAPARIN
     Dosage: 1000 INTERNATIONAL UNIT, QD
     Route: 058
     Dates: start: 20180619, end: 20181018
  27. FILGRASTIM [Concomitant]
     Active Substance: FILGRASTIM
     Dosage: UNK
  28. IRON ISOMALTOSIDE 1000 [Concomitant]
     Active Substance: IRON ISOMALTOSIDE 1000
     Dosage: UNK
  29. TRASTUZUMAB EMTANSINE [Suspect]
     Active Substance: ADO-TRASTUZUMAB EMTANSINE
     Dosage: 180 MILLIGRAM, DISEASE PROGRESSION, FURTHER ANTICANCER TREATMENT
     Route: 042
     Dates: start: 20180904, end: 20190830
  30. DEXAMETHASONE. [Concomitant]
     Active Substance: DEXAMETHASONE
     Dosage: 8 MILLIGRAM, BID, PART OF CHEMOTHERAPY CYCLE
     Route: 048
     Dates: start: 20160512
  31. POTASSIUM [Concomitant]
     Active Substance: POTASSIUM
     Indication: BLOOD POTASSIUM DECREASED
     Dosage: 50 MILLIMOLE, QD
     Route: 042
     Dates: start: 20180619, end: 20180620
  32. TRAMADOL. [Concomitant]
     Active Substance: TRAMADOL
     Dosage: 50 MILLIGRAM, QID
     Route: 048
     Dates: start: 20160429
  33. ZOPICLONE [Concomitant]
     Active Substance: ZOPICLONE
     Dosage: UNK
     Route: 048
  34. TRASTUZUMAB. [Suspect]
     Active Substance: TRASTUZUMAB
     Indication: PRODUCT USED FOR UNKNOWN INDICATION
     Dosage: 400 MILLIGRAM, DOSE AMENDED DUE TO WEIGHT
     Route: 042
     Dates: start: 20160516, end: 20160516
  35. CO?AMOXICLAV                       /00756801/ [Concomitant]
     Active Substance: AMOXICILLIN\CLAVULANIC ACID
     Indication: RESPIRATORY TRACT INFECTION
     Dosage: UNK
     Route: 065
     Dates: start: 20171108, end: 20171115
  36. LANSOPRAZOLE. [Concomitant]
     Active Substance: LANSOPRAZOLE
     Indication: DYSPHAGIA
     Dosage: 30 MILLIGRAM, QD
     Route: 048
     Dates: start: 20180619
  37. MORPHINE SULFATE. [Concomitant]
     Active Substance: MORPHINE SULFATE
     Indication: BACK PAIN
     Dosage: 5 MILLIGRAM
     Route: 048
     Dates: start: 20180822
  38. MORPHINE SULFATE. [Concomitant]
     Active Substance: MORPHINE SULFATE
     Dosage: 10 MILLIGRAM, BID
     Route: 048
     Dates: start: 20180822
  39. TINZAPARIN [Concomitant]
     Active Substance: TINZAPARIN
     Dosage: 9000 INTERNATIONAL UNIT, QD
     Route: 058
     Dates: start: 20190426
  40. CANDESARTAN. [Concomitant]
     Active Substance: CANDESARTAN
     Dosage: UNK
  41. TRASTUZUMAB. [Suspect]
     Active Substance: TRASTUZUMAB
     Dosage: 400 MILLIGRAM, Q3W
     Route: 042
     Dates: start: 20160606, end: 20160606
  42. BUDESONIDE. [Concomitant]
     Active Substance: BUDESONIDE
     Dosage: 9 MILLIGRAM
     Route: 048
     Dates: start: 20191016
  43. LOPERAMIDE [Concomitant]
     Active Substance: LOPERAMIDE
     Indication: DEEP VEIN THROMBOSIS
     Dosage: 2 MILLIGRAM
     Route: 048
     Dates: start: 20160516
  44. OMEPRAZOLE. [Concomitant]
     Active Substance: OMEPRAZOLE
     Dosage: 20 MILLIGRAM, BID
     Route: 048
  45. TINZAPARIN [Concomitant]
     Active Substance: TINZAPARIN
     Dosage: 12000 INTERNATIONAL UNIT
     Route: 058
     Dates: start: 20160713
  46. ZOLEDRONIC ACID [Concomitant]
     Active Substance: ZOLEDRONIC ACID
     Indication: BACK PAIN
     Dosage: 4 MILLIGRAM, MONTHLY
     Route: 042
     Dates: start: 20180822
  47. LEVOMENTHOL [Concomitant]
     Active Substance: LEVOMENTHOL
     Dosage: UNK, MENTHOL AQUEOUS CREAM

REACTIONS (2)
  - Off label use [Unknown]
  - Ejection fraction decreased [Recovered/Resolved]

NARRATIVE: CASE EVENT DATE: 20161027
